FAERS Safety Report 5044062-X (Version None)
Quarter: 2006Q3

REPORT INFORMATION
  Report Type: 
  Country: None (occurrence: None)
  Receive Date: 20060706
  Receipt Date: 20060622
  Transmission Date: 20061208
  Serious: Yes (Other)
  Sender: FDA-Public Use
  Company Number: PHBS2006PL09404

PATIENT
  Age: 35 Year
  Sex: Male

DRUGS (7)
  1. CYCLOSPORINE [Suspect]
     Indication: PSORIATIC ARTHROPATHY
     Dosage: 2.5 MG/KG/D
     Route: 065
  2. CYCLOSPORINE [Suspect]
     Dosage: 4 MG/KG/D
     Route: 065
  3. CYCLOSPORINE [Suspect]
     Dosage: 3 MG/KG/D
     Route: 065
  4. METHOTREXATE [Suspect]
     Indication: PSORIATIC ARTHROPATHY
     Dosage: 17.5 MG, QW
     Route: 065
  5. METHOTREXATE [Suspect]
     Dosage: 15 MG, QW
     Route: 065
  6. METHYLPREDNISOLONE [Suspect]
     Indication: PSORIATIC ARTHROPATHY
     Dosage: 5 MG/D
     Route: 065
  7. METHYLPREDNISOLONE [Suspect]
     Dosage: 4 MG/D
     Route: 065

REACTIONS (7)
  - GINGIVAL HYPERPLASIA [None]
  - HAEMANGIOMA OF SKIN [None]
  - HAEMANGIOMA REMOVAL [None]
  - SKIN DEPIGMENTATION [None]
  - SKIN NODULE [None]
  - THERAPEUTIC RESPONSE DECREASED [None]
  - VASCULAR SKIN DISORDER [None]
